FAERS Safety Report 7556996-2 (Version None)
Quarter: 2011Q2

REPORT INFORMATION
  Report Type: 
  Country: None (occurrence: None)
  Receive Date: 20110620
  Receipt Date: 20110613
  Transmission Date: 20111010
  Serious: Yes (Death, Hospitalization, Other)
  Sender: FDA-Public Use
  Company Number: PHHY2011BR52053

PATIENT
  Sex: Male
  Weight: 57 kg

DRUGS (3)
  1. EXELON [Suspect]
     Indication: DEMENTIA ALZHEIMER'S TYPE
     Dosage: TTS 9 MG/5CM2 AT A DOSE OF 1 PATCH A DAY
     Route: 062
     Dates: start: 20110201, end: 20110401
  2. DIOVAN [Suspect]
     Dosage: UNK, QD
  3. LEVOTHYROXINE SODIUM [Concomitant]
     Dosage: 75 MG, QD

REACTIONS (4)
  - MULTI-ORGAN FAILURE [None]
  - AGITATION [None]
  - INSOMNIA [None]
  - AGGRESSION [None]
